FAERS Safety Report 6858227-5 (Version None)
Quarter: 2010Q3

REPORT INFORMATION
  Report Type: 
  Country: None (occurrence: None)
  Receive Date: 20100719
  Receipt Date: 20080411
  Transmission Date: 20110219
  Serious: No
  Sender: FDA-Public Use
  Company Number: US-PFIZER INC-2008012522

PATIENT
  Sex: Female
  Weight: 68.9 kg

DRUGS (8)
  1. CHANTIX [Suspect]
     Indication: SMOKING CESSATION THERAPY
     Route: 048
     Dates: start: 20071001
  2. WARFARIN SODIUM [Concomitant]
  3. COZAAR [Concomitant]
  4. HYDROXYUREA [Concomitant]
  5. ACETYLSALICYLIC ACID [Concomitant]
  6. MAGNESIUM HYDROXIDE TAB [Concomitant]
  7. XANAX [Concomitant]
  8. NORVASC [Concomitant]

REACTIONS (9)
  - ABDOMINAL DISCOMFORT [None]
  - ANXIETY [None]
  - BED REST [None]
  - HYPOPHAGIA [None]
  - INCORRECT DOSE ADMINISTERED [None]
  - NAUSEA [None]
  - PULSE ABNORMAL [None]
  - WEIGHT DECREASED [None]
  - WHITE BLOOD CELL DISORDER [None]
